FAERS Safety Report 5371333-X (Version None)
Quarter: 2007Q2

REPORT INFORMATION
  Report Type: 
  Country: None (occurrence: None)
  Receive Date: 20070622
  Receipt Date: 20070611
  Transmission Date: 20071010
  Serious: Yes (Hospitalization)
  Sender: FDA-Public Use
  Company Number: 157447ISR

PATIENT
  Age: 82 Year
  Sex: Female

DRUGS (1)
  1. DOXAZOSIN MESYLATE [Suspect]
     Indication: HYPERTENSION
     Dosage: 8 MG (4 MG, 2 IN 1 D) ORAL
     Route: 048
     Dates: end: 20061214

REACTIONS (1)
  - CARDIAC FAILURE CONGESTIVE [None]
